FAERS Safety Report 8355226-1 (Version None)
Quarter: 2012Q2

REPORT INFORMATION
  Report Type: 
  Country: None (occurrence: None)
  Receive Date: 20120511
  Receipt Date: 20120430
  Transmission Date: 20120825
  Serious: Yes (Other)
  Sender: FDA-Public Use
  Company Number: FR-ELI_LILLY_AND_COMPANY-FR201112002848

PATIENT
  Age: 60 Year
  Sex: Male
  Weight: 76 kg

DRUGS (10)
  1. FORTEO [Suspect]
     Indication: OSTEOPOROSIS
     Dosage: 20 UG, QD
     Route: 058
     Dates: start: 20110617
  2. PERINDOPRIL ERBUMINE [Concomitant]
     Indication: HYPERTENSION
     Dosage: 1.5 DF, QD
  3. DIGOXIN [Concomitant]
     Indication: AORTIC STENOSIS
     Dosage: 1 DF, QD
  4. NEXIUM [Concomitant]
     Dosage: 40 MG, QD
  5. BRONCHODUAL [Concomitant]
     Indication: RESPIRATORY FAILURE
     Dosage: 4 DF, QD
  6. PROPRANOLOL [Concomitant]
     Indication: HYPERTENSION
     Dosage: 160 MG, QD
  7. ACETAMINOPHEN [Concomitant]
     Indication: BONE PAIN
     Dosage: UNK
  8. LERCANIDIPINE [Concomitant]
     Indication: HYPERTENSION
     Dosage: 1 DF, QD
  9. SPIRIVA [Concomitant]
     Indication: RESPIRATORY FAILURE
     Dosage: 1 DF, QD
  10. ACETAMINOPHEN [Concomitant]
     Indication: BONE PAIN
     Dosage: 6 DF, QD

REACTIONS (2)
  - WEIGHT DECREASED [None]
  - THROMBOCYTOPENIA [None]
